FAERS Safety Report 15586546 (Version 2)
Quarter: 2019Q1

REPORT INFORMATION
  Report Type: Report from Study
  Country: DE (occurrence: DE)
  Receive Date: 20181105
  Receipt Date: 20190205
  Transmission Date: 20190417
  Serious: Yes (Other)
  Sender: FDA-Public Use
  Company Number: DE-BAYER-2018-199060

PATIENT
  Sex: Male
  Weight: 85 kg

DRUGS (9)
  1. PREDNISOLONE HEMISUCCINATE [Concomitant]
     Active Substance: PREDNISOLONE HEMISUCCINATE
     Dosage: 1000 MG, UNK
     Dates: start: 20181009, end: 20181012
  2. PREDNISOLONE HEMISUCCINATE [Concomitant]
     Active Substance: PREDNISOLONE HEMISUCCINATE
     Dosage: 1000 MG, UNK
     Dates: start: 20180926, end: 20180928
  3. PREDNISOLONE HEMISUCCINATE [Concomitant]
     Active Substance: PREDNISOLONE HEMISUCCINATE
     Dosage: 1000 MG, UNK
     Dates: start: 20170516, end: 20170619
  4. PREDNISOLONE HEMISUCCINATE [Concomitant]
     Active Substance: PREDNISOLONE HEMISUCCINATE
  5. METHYLPREDNISOLON [METHYLPREDNISOLONE] [Concomitant]
     Dosage: 1 G, UNK
     Dates: start: 20180323, end: 20180325
  6. BETAFERON [Suspect]
     Active Substance: INTERFERON BETA-1B
     Indication: MULTIPLE SCLEROSIS
     Dosage: UNK
     Route: 058
     Dates: start: 20170407, end: 20181012
  7. BISOPROLOL [Concomitant]
     Active Substance: BISOPROLOL
     Dosage: 5 MG
     Dates: start: 2017
  8. ALFUZOSIN [Concomitant]
     Active Substance: ALFUZOSIN
     Dosage: 2.5 MG
     Dates: start: 2018
  9. LISINOPRIL. [Concomitant]
     Active Substance: LISINOPRIL
     Dosage: 10 MG
     Dates: start: 2017

REACTIONS (2)
  - Atrial flutter [Recovered/Resolved]
  - Drug ineffective [Recovered/Resolved]

NARRATIVE: CASE EVENT DATE: 20181012
